FAERS Safety Report 4289641-2 (Version None)
Quarter: 2004Q1

REPORT INFORMATION
  Report Type: 
  Country: None (occurrence: None)
  Receive Date: 20040203
  Receipt Date: 20030203
  Transmission Date: 20041129
  Serious: Yes (Other)
  Sender: FDA-Public Use
  Company Number: 200311875BWH

PATIENT
  Age: 46 Year
  Sex: Male
  Weight: 87.9978 kg

DRUGS (1)
  1. AVELOX [Suspect]
     Indication: UPPER RESPIRATORY TRACT INFECTION
     Dosage: 400 MG, QD, ORAL
     Route: 048
     Dates: start: 20020801

REACTIONS (2)
  - AGEUSIA [None]
  - ANOSMIA [None]
